FAERS Safety Report 8244730-2 (Version None)
Quarter: 2012Q1

REPORT INFORMATION
  Report Type: 
  Country: None (occurrence: None)
  Receive Date: 20120329
  Receipt Date: 20110228
  Transmission Date: 20120608
  Serious: No
  Sender: FDA-Public Use
  Company Number: US-MYLANLABS-2011S1004188

PATIENT
  Age: 48 Year
  Sex: Female
  Weight: 88.91 kg

DRUGS (5)
  1. CATAPRES [Concomitant]
     Indication: HYPERTENSION
     Route: 062
     Dates: start: 20100101
  2. LANTUS [Concomitant]
     Indication: DIABETES MELLITUS
     Route: 058
     Dates: start: 20080101
  3. HUMALOG [Concomitant]
     Indication: DIABETES MELLITUS
     Route: 058
     Dates: start: 20080101
  4. FENTANYL-100 [Suspect]
     Indication: BACK PAIN
     Dosage: CHANGED Q 72 HOURS.
     Route: 062
     Dates: start: 20100101
  5. FENTANYL-100 [Suspect]
     Dosage: CHANGED Q 72 HOURS.
     Route: 062
     Dates: start: 20100101

REACTIONS (1)
  - DRUG SCREEN NEGATIVE [None]
